FAERS Safety Report 20591175 (Version 4)
Quarter: 2023Q1

REPORT INFORMATION
  Report Type: Spontaneous
  Country: LT (occurrence: LT)
  Receive Date: 20220314
  Receipt Date: 20230103
  Transmission Date: 20230418
  Serious: Yes (Death, Other)
  Sender: FDA-Public Use
  Company Number: LT-BAYER-2022A015399

PATIENT
  Age: 57 Year
  Sex: Male

DRUGS (7)
  1. DOXORUBICIN [Suspect]
     Active Substance: DOXORUBICIN
     Indication: Hepatocellular carcinoma
     Dosage: UNK
     Route: 065
  2. CABOZANTINIB [Suspect]
     Active Substance: CABOZANTINIB
     Indication: Product used for unknown indication
     Dosage: 60 MILLIGRAM, QD
     Route: 065
  3. CABOZANTINIB [Suspect]
     Active Substance: CABOZANTINIB
     Dosage: 40 MILLIGRAM, QD
     Route: 065
  4. NEXAVAR [Suspect]
     Active Substance: SORAFENIB
     Indication: Hepatocellular carcinoma
     Dosage: UNK
     Route: 065
  5. FLUOROURACIL\LEUCOVORIN CALCIUM\OXALIPLATIN [Suspect]
     Active Substance: FLUOROURACIL\LEUCOVORIN CALCIUM\OXALIPLATIN
     Indication: Hepatocellular carcinoma
     Dosage: UNK
     Route: 065
     Dates: start: 20181130, end: 20190226
  6. CABOMETYX [Suspect]
     Active Substance: CABOZANTINIB S-MALATE
     Indication: Hepatocellular carcinoma
     Dosage: 40 MILLIGRAM, QD
     Route: 065
     Dates: start: 20200701, end: 20201007
  7. CABOMETYX [Suspect]
     Active Substance: CABOZANTINIB S-MALATE
     Dosage: 60 MILLIGRAM, QD
     Route: 065
     Dates: start: 20200529

REACTIONS (8)
  - Bleeding varicose vein [Fatal]
  - Nausea [Fatal]
  - Asthenia [Fatal]
  - Palmar-plantar erythrodysaesthesia syndrome [Fatal]
  - Metastases to liver [Unknown]
  - Metastases to lung [Unknown]
  - Hepatocellular carcinoma [Unknown]
  - Drug ineffective [Unknown]

NARRATIVE: CASE EVENT DATE: 20201129
